FAERS Safety Report 13141982 (Version 1)
Quarter: 2017Q1

REPORT INFORMATION
  Report Type: Spontaneous
  Country: US (occurrence: US)
  Receive Date: 20170123
  Receipt Date: 20170123
  Transmission Date: 20170428
  Serious: Yes (Other)
  Sender: FDA-Public Use
  Company Number: None

PATIENT
  Age: 59 Year
  Sex: Female
  Weight: 42.75 kg

DRUGS (3)
  1. ATENOLOL 25MG [Suspect]
     Active Substance: ATENOLOL
     Indication: HEART RATE ABNORMAL
     Dosage: ?          QUANTITY:1 TABLET(S);?
     Route: 048
     Dates: start: 20160521, end: 20161221
  2. MOTRIN [Concomitant]
     Active Substance: IBUPROFEN
  3. VITAMIN D [Concomitant]
     Active Substance: CHOLECALCIFEROL

REACTIONS (1)
  - Alopecia [None]

NARRATIVE: CASE EVENT DATE: 20161015
